FAERS Safety Report 21273507 (Version 1)
Quarter: 2022Q3

REPORT INFORMATION
  Report Type: Spontaneous
  Country: US (occurrence: None)
  Receive Date: 20220830
  Receipt Date: 20220830
  Transmission Date: 20221027
  Serious: No
  Sender: FDA-Public Use
  Company Number: None

PATIENT
  Sex: Female

DRUGS (1)
  1. PIRFENIDONE [Suspect]
     Active Substance: PIRFENIDONE
     Indication: Idiopathic pulmonary fibrosis
     Dosage: 801MG TWICE DAILY ORAL?
     Route: 048
     Dates: start: 20220527

REACTIONS (3)
  - Dry eye [None]
  - Lacrimation increased [None]
  - Ocular discomfort [None]
